FAERS Safety Report 13787583 (Version 1)
Quarter: 2017Q3

REPORT INFORMATION
  Report Type: Spontaneous
  Country: US (occurrence: US)
  Receive Date: 20170725
  Receipt Date: 20170725
  Transmission Date: 20171127
  Serious: No
  Sender: FDA-Public Use
  Company Number: US-JNJFOC-20170710308

PATIENT
  Age: 75 Year
  Sex: Male
  Weight: 96.16 kg

DRUGS (2)
  1. TYLENOL 8HR ARTHRITIS [Concomitant]
     Indication: PAIN
     Dosage: NCE IN THE AFTERNOON AND ONCE AT NIGHT
     Route: 065
     Dates: start: 20170702
  2. TYLENOL EXTRA STRENGTH [Suspect]
     Active Substance: ACETAMINOPHEN
     Indication: PAIN IN EXTREMITY
     Route: 048
     Dates: start: 20170702

REACTIONS (2)
  - Drug administration error [Unknown]
  - Incorrect dose administered [Unknown]

NARRATIVE: CASE EVENT DATE: 20170702
